FAERS Safety Report 25774633 (Version 1)
Quarter: 2025Q3

REPORT INFORMATION
  Report Type: Spontaneous
  Country: BN (occurrence: BN)
  Receive Date: 20250908
  Receipt Date: 20250908
  Transmission Date: 20251020
  Serious: Yes (Death, Hospitalization)
  Sender: BOEHRINGER INGELHEIM
  Company Number: BN-BoehringerIngelheim-2025-BI-093846

PATIENT
  Age: 79 Year
  Sex: Female

DRUGS (1)
  1. PRAXBIND [Suspect]
     Active Substance: IDARUCIZUMAB
     Indication: Procoagulant therapy
     Dates: start: 20250825, end: 20250825

REACTIONS (1)
  - Gangrene [Fatal]
